FAERS Safety Report 5975864-0 (Version None)
Quarter: 2008Q4

REPORT INFORMATION
  Report Type: 
  Country: None (occurrence: None)
  Receive Date: 20081202
  Receipt Date: 20081125
  Transmission Date: 20090506
  Serious: Yes (Other)
  Sender: FDA-Public Use
  Company Number: B0531149A

PATIENT
  Age: 75 Year
  Sex: Female

DRUGS (2)
  1. SERETIDE [Suspect]
     Indication: ASTHMA
     Dosage: 2PUFF TWICE PER DAY
     Route: 065
  2. VENTOLIN [Suspect]
     Indication: ASTHMA
     Dosage: 100MCG AS REQUIRED
     Route: 055

REACTIONS (2)
  - ANKLE FRACTURE [None]
  - COUGH [None]
